FAERS Safety Report 11591906 (Version 1)
Quarter: 2015Q4

REPORT INFORMATION
  Report Type: Spontaneous
  Country: US (occurrence: US)
  Receive Date: 20151005
  Receipt Date: 20151005
  Transmission Date: 20160304
  Serious: Yes (Other)
  Sender: FDA-Public Use
  Company Number: US-ASTRAZENECA-2015SE93368

PATIENT
  Age: 27591 Day
  Sex: Female
  Weight: 73.9 kg

DRUGS (9)
  1. TRIAMTERENE. [Concomitant]
     Active Substance: TRIAMTERENE
     Indication: BLOOD PRESSURE ABNORMAL
     Dosage: 37.5/25 MG,  DAILY
     Route: 048
  2. HYDROCODONE [Concomitant]
     Active Substance: HYDROCODONE
     Indication: PAIN
     Dosage: 7.5/325 EVERY EIGHT HOURS
     Route: 048
  3. MOVANTIK [Suspect]
     Active Substance: NALOXEGOL OXALATE
     Indication: CONSTIPATION
     Route: 048
     Dates: start: 20150918
  4. CALCIUM [Concomitant]
     Active Substance: CALCIUM
     Indication: BONE DISORDER
     Dosage: TWO TIMES A DAY
     Route: 048
     Dates: start: 2014
  5. HYDROCODONE [Concomitant]
     Active Substance: HYDROCODONE
     Indication: PAIN
     Dosage: 7.5/325 EVERY EIGHT HOURS
     Route: 048
     Dates: start: 20150920
  6. LISINOPRIL. [Suspect]
     Active Substance: LISINOPRIL
     Indication: BLOOD PRESSURE ABNORMAL
     Route: 048
  7. GABAPENTIN. [Concomitant]
     Active Substance: GABAPENTIN
     Indication: NEURALGIA
     Route: 048
     Dates: start: 201509
  8. LOVASTATIN. [Concomitant]
     Active Substance: LOVASTATIN
     Indication: BLOOD CHOLESTEROL
     Route: 048
  9. GLYBURIDE. [Concomitant]
     Active Substance: GLYBURIDE
     Indication: BLOOD GLUCOSE ABNORMAL
     Route: 048

REACTIONS (7)
  - Nausea [Unknown]
  - Chills [Unknown]
  - Flatulence [Unknown]
  - Drug withdrawal syndrome [Unknown]
  - Anxiety [Unknown]
  - Irritability [Unknown]
  - Dizziness [Unknown]

NARRATIVE: CASE EVENT DATE: 20150918
